FAERS Safety Report 8928701 (Version 1)
Quarter: 2012Q4

REPORT INFORMATION
  Report Type: Spontaneous
  Country: US (occurrence: None)
  Receive Date: 20121120
  Receipt Date: 20121120
  Transmission Date: 20130627
  Serious: Yes (Other)
  Sender: FDA-Public Use
  Company Number: DKLU1086256

PATIENT
  Age: 53 Year
  Sex: Female

DRUGS (2)
  1. ONFI [Suspect]
     Indication: EPILEPSY
     Route: 048
     Dates: start: 20121016
  2. TEGRETOL (CARBAMAZEPINE) [Concomitant]

REACTIONS (2)
  - Vaginal haemorrhage [None]
  - Weight increased [None]
